FAERS Safety Report 16516963 (Version 2)
Quarter: 2019Q3

REPORT INFORMATION
  Report Type: Other
  Country: JP (occurrence: JP)
  Receive Date: 20190702
  Receipt Date: 20190709
  Transmission Date: 20191004
  Serious: Yes (Other)
  Sender: FDA-Public Use
  Company Number: JP-ALSI-201900275

PATIENT
  Age: 5 Day
  Sex: Female

DRUGS (1)
  1. OXYGEN. [Suspect]
     Active Substance: OXYGEN
     Indication: OFF LABEL USE
     Route: 055

REACTIONS (3)
  - Oxygen saturation decreased [Unknown]
  - Off label use [Unknown]
  - Cardiac failure [Unknown]
